FAERS Safety Report 9223372 (Version 1)
Quarter: 2013Q2

REPORT INFORMATION
  Report Type: Spontaneous
  Country: BR (occurrence: BR)
  Receive Date: 20130410
  Receipt Date: 20130410
  Transmission Date: 20140414
  Serious: Yes (Other)
  Sender: FDA-Public Use
  Company Number: BR-ABBOTT-13A-020-1072240-00

PATIENT
  Age: 45 Year
  Sex: Female
  Weight: 62 kg

DRUGS (5)
  1. DEPAKOTE [Suspect]
     Indication: JUVENILE MYOCLONIC EPILEPSY
     Dosage: ONE TABLET IN THE MORNING/ ONE TABLET IN THE AFTERNOON, AFTER LUNCH/ ONE TABLET AT NIGHT
     Route: 048
  2. DEPAKENE [Suspect]
     Indication: JUVENILE MYOCLONIC EPILEPSY
     Dosage: ONE TABLET IN THE MORNING/ ONE TABLET IN THE AFTERNOON/ ONE TABLET AT NIGHT
     Route: 048
     Dates: start: 1994, end: 1998
  3. RIVOTRIL [Concomitant]
     Indication: ANXIETY
     Route: 048
  4. RIVOTRIL [Concomitant]
     Indication: FEELING JITTERY
  5. UNKNOWN DRUG [Concomitant]
     Indication: ANAESTHESIA
     Dosage: THREE INJECTIONS ON 16-APR-2008
     Dates: start: 20080416, end: 20080416

REACTIONS (21)
  - Syncope [Recovered/Resolved]
  - Convulsion [Recovered/Resolved]
  - Convulsion [Recovered/Resolved]
  - Convulsion [Recovered/Resolved]
  - Convulsion [Recovered/Resolved]
  - Myocardial infarction [Unknown]
  - Headache [Recovered/Resolved]
  - Hypotension [Recovered/Resolved]
  - Tremor [Recovered/Resolved]
  - Dizziness [Recovered/Resolved]
  - Asthenia [Recovered/Resolved]
  - Dysstasia [Recovered/Resolved]
  - Photosensitivity reaction [Unknown]
  - Agitation [Unknown]
  - Drug dose omission [Unknown]
  - Myopia [Unknown]
  - Job dissatisfaction [Unknown]
  - Therapy change [Unknown]
  - Product colour issue [Unknown]
  - Menstrual disorder [Unknown]
  - Hormone level abnormal [Unknown]
